FAERS Safety Report 6763443-7 (Version None)
Quarter: 2010Q2

REPORT INFORMATION
  Report Type: 
  Country: None (occurrence: None)
  Receive Date: 20100608
  Receipt Date: 20100524
  Transmission Date: 20101027
  Serious: Yes (Other)
  Sender: FDA-Public Use
  Company Number: AUR-APL-2010-01382

PATIENT
  Age: 16 Year
  Sex: Female
  Weight: 63.5 kg

DRUGS (3)
  1. FLUOXETINE HCL [Suspect]
     Indication: CONVULSION
     Dosage: 20MG, DAILY, ORAL
     Route: 048
     Dates: start: 20091002, end: 20100321
  2. FLUOXETINE HCL [Suspect]
     Indication: DEPRESSION
     Dosage: 20MG, DAILY, ORAL
     Route: 048
     Dates: start: 20091002, end: 20100321
  3. OLANZAPINE [Suspect]
     Indication: POST-TRAUMATIC EPILEPSY
     Dosage: 2.5MG, DAILY, ORAL
     Route: 048
     Dates: start: 20100304, end: 20100321

REACTIONS (3)
  - BLISTER [None]
  - PAIN [None]
  - RASH ERYTHEMATOUS [None]
